FAERS Safety Report 24112567 (Version 2)
Quarter: 2024Q3

REPORT INFORMATION
  Report Type: Spontaneous
  Country: AU (occurrence: None)
  Receive Date: 20240719
  Receipt Date: 20240909
  Transmission Date: 20241016
  Serious: Yes (Life-Threatening, Hospitalization)
  Sender: ASTRAZENECA
  Company Number: 2024A164182

PATIENT
  Age: 70 Year
  Sex: Female

DRUGS (71)
  1. OSIMERTINIB [Suspect]
     Active Substance: OSIMERTINIB
     Indication: Lung adenocarcinoma stage III
     Route: 048
     Dates: start: 2021
  2. OSIMERTINIB [Suspect]
     Active Substance: OSIMERTINIB
     Indication: EGFR gene mutation
     Route: 048
     Dates: start: 2021
  3. OSIMERTINIB [Suspect]
     Active Substance: OSIMERTINIB
     Indication: Lung adenocarcinoma stage III
     Route: 048
     Dates: start: 2021
  4. OSIMERTINIB [Suspect]
     Active Substance: OSIMERTINIB
     Indication: EGFR gene mutation
     Route: 048
     Dates: start: 2021
  5. OSIMERTINIB [Suspect]
     Active Substance: OSIMERTINIB
     Indication: Lung adenocarcinoma stage III
     Route: 048
  6. OSIMERTINIB [Suspect]
     Active Substance: OSIMERTINIB
     Indication: EGFR gene mutation
     Route: 048
  7. OSIMERTINIB [Suspect]
     Active Substance: OSIMERTINIB
     Indication: Lung adenocarcinoma stage III
     Dosage: 5 MG(=2.5 ML)
     Route: 048
     Dates: start: 20210424
  8. OSIMERTINIB [Suspect]
     Active Substance: OSIMERTINIB
     Indication: EGFR gene mutation
     Dosage: 5 MG(=2.5 ML)
     Route: 048
     Dates: start: 20210424
  9. OSIMERTINIB [Suspect]
     Active Substance: OSIMERTINIB
     Indication: Lung adenocarcinoma stage III
     Dosage: 5 MG(=2.5 ML)
     Route: 048
     Dates: start: 20210425
  10. OSIMERTINIB [Suspect]
     Active Substance: OSIMERTINIB
     Indication: EGFR gene mutation
     Dosage: 5 MG(=2.5 ML)
     Route: 048
     Dates: start: 20210425
  11. OSIMERTINIB [Suspect]
     Active Substance: OSIMERTINIB
     Indication: Lung adenocarcinoma stage III
     Dosage: 8 MG(=4 ML)
     Route: 048
     Dates: start: 20210426
  12. OSIMERTINIB [Suspect]
     Active Substance: OSIMERTINIB
     Indication: EGFR gene mutation
     Dosage: 8 MG(=4 ML)
     Route: 048
     Dates: start: 20210426
  13. OSIMERTINIB [Suspect]
     Active Substance: OSIMERTINIB
     Indication: Lung adenocarcinoma stage III
     Dosage: 8 MG(=4 ML)
     Route: 048
     Dates: start: 20210427
  14. OSIMERTINIB [Suspect]
     Active Substance: OSIMERTINIB
     Indication: EGFR gene mutation
     Dosage: 8 MG(=4 ML)
     Route: 048
     Dates: start: 20210427
  15. OSIMERTINIB [Suspect]
     Active Substance: OSIMERTINIB
     Indication: Lung adenocarcinoma stage III
     Dosage: 8 MG (=4 ML)
     Route: 048
     Dates: start: 20210428
  16. OSIMERTINIB [Suspect]
     Active Substance: OSIMERTINIB
     Indication: EGFR gene mutation
     Dosage: 8 MG (=4 ML)
     Route: 048
     Dates: start: 20210428
  17. OSIMERTINIB [Suspect]
     Active Substance: OSIMERTINIB
     Indication: Lung adenocarcinoma stage III
     Dosage: 10 MG (=5 ML)
     Route: 048
     Dates: start: 20210429
  18. OSIMERTINIB [Suspect]
     Active Substance: OSIMERTINIB
     Indication: EGFR gene mutation
     Dosage: 10 MG (=5 ML)
     Route: 048
     Dates: start: 20210429
  19. OSIMERTINIB [Suspect]
     Active Substance: OSIMERTINIB
     Indication: Lung adenocarcinoma stage III
     Dosage: 10 MG (=5 ML)
     Route: 048
     Dates: start: 20210430
  20. OSIMERTINIB [Suspect]
     Active Substance: OSIMERTINIB
     Indication: EGFR gene mutation
     Dosage: 10 MG (=5 ML)
     Route: 048
     Dates: start: 20210430
  21. OSIMERTINIB [Suspect]
     Active Substance: OSIMERTINIB
     Indication: Lung adenocarcinoma stage III
     Dosage: 10 MG (=5 ML)
     Route: 048
     Dates: start: 20210501
  22. OSIMERTINIB [Suspect]
     Active Substance: OSIMERTINIB
     Indication: EGFR gene mutation
     Dosage: 10 MG (=5 ML)
     Route: 048
     Dates: start: 20210501
  23. OSIMERTINIB [Suspect]
     Active Substance: OSIMERTINIB
     Indication: Lung adenocarcinoma stage III
     Dosage: 15 MG (=7.5 ML)
     Route: 048
     Dates: start: 20210502
  24. OSIMERTINIB [Suspect]
     Active Substance: OSIMERTINIB
     Indication: EGFR gene mutation
     Dosage: 15 MG (=7.5 ML)
     Route: 048
     Dates: start: 20210502
  25. OSIMERTINIB [Suspect]
     Active Substance: OSIMERTINIB
     Indication: Lung adenocarcinoma stage III
     Dosage: 15 MG (=7.5 ML)
     Route: 048
     Dates: start: 20210503
  26. OSIMERTINIB [Suspect]
     Active Substance: OSIMERTINIB
     Indication: EGFR gene mutation
     Dosage: 15 MG (=7.5 ML)
     Route: 048
     Dates: start: 20210503
  27. OSIMERTINIB [Suspect]
     Active Substance: OSIMERTINIB
     Indication: Lung adenocarcinoma stage III
     Dosage: 15 MG (=7.5 ML)
     Route: 048
     Dates: start: 20210504
  28. OSIMERTINIB [Suspect]
     Active Substance: OSIMERTINIB
     Indication: EGFR gene mutation
     Dosage: 15 MG (=7.5 ML)
     Route: 048
     Dates: start: 20210504
  29. OSIMERTINIB [Suspect]
     Active Substance: OSIMERTINIB
     Indication: Lung adenocarcinoma stage III
     Dosage: 20 MG (=10 ML)
     Route: 048
     Dates: start: 20210505
  30. OSIMERTINIB [Suspect]
     Active Substance: OSIMERTINIB
     Indication: EGFR gene mutation
     Dosage: 20 MG (=10 ML)
     Route: 048
     Dates: start: 20210505
  31. OSIMERTINIB [Suspect]
     Active Substance: OSIMERTINIB
     Indication: Lung adenocarcinoma stage III
     Dosage: 20 MG (=10 ML)
     Route: 048
     Dates: start: 20210506
  32. OSIMERTINIB [Suspect]
     Active Substance: OSIMERTINIB
     Indication: EGFR gene mutation
     Dosage: 20 MG (=10 ML)
     Route: 048
     Dates: start: 20210506
  33. OSIMERTINIB [Suspect]
     Active Substance: OSIMERTINIB
     Indication: Lung adenocarcinoma stage III
     Dosage: 20 MG (=10 ML)
     Route: 048
     Dates: start: 20210507
  34. OSIMERTINIB [Suspect]
     Active Substance: OSIMERTINIB
     Indication: EGFR gene mutation
     Dosage: 20 MG (=10 ML)
     Route: 048
     Dates: start: 20210507
  35. OSIMERTINIB [Suspect]
     Active Substance: OSIMERTINIB
     Indication: Lung adenocarcinoma stage III
     Dosage: 30 MG (=15 ML)
     Route: 048
     Dates: start: 20210508
  36. OSIMERTINIB [Suspect]
     Active Substance: OSIMERTINIB
     Indication: EGFR gene mutation
     Dosage: 30 MG (=15 ML)
     Route: 048
     Dates: start: 20210508
  37. OSIMERTINIB [Suspect]
     Active Substance: OSIMERTINIB
     Indication: Lung adenocarcinoma stage III
     Dosage: 30 MG (=15 ML)
     Route: 048
     Dates: start: 20210509
  38. OSIMERTINIB [Suspect]
     Active Substance: OSIMERTINIB
     Indication: EGFR gene mutation
     Dosage: 30 MG (=15 ML)
     Route: 048
     Dates: start: 20210509
  39. OSIMERTINIB [Suspect]
     Active Substance: OSIMERTINIB
     Indication: Lung adenocarcinoma stage III
     Dosage: 30 MG (=15 ML)
     Route: 048
     Dates: start: 20210510
  40. OSIMERTINIB [Suspect]
     Active Substance: OSIMERTINIB
     Indication: EGFR gene mutation
     Dosage: 30 MG (=15 ML)
     Route: 048
     Dates: start: 20210510
  41. OSIMERTINIB [Suspect]
     Active Substance: OSIMERTINIB
     Indication: Lung adenocarcinoma stage III
     Dosage: 40 MG (=20 ML)
     Route: 048
     Dates: start: 20210511
  42. OSIMERTINIB [Suspect]
     Active Substance: OSIMERTINIB
     Indication: EGFR gene mutation
     Dosage: 40 MG (=20 ML)
     Route: 048
     Dates: start: 20210511
  43. OSIMERTINIB [Suspect]
     Active Substance: OSIMERTINIB
     Indication: Lung adenocarcinoma stage III
     Dosage: 40 MG (=20 ML)
     Route: 048
     Dates: start: 20210512
  44. OSIMERTINIB [Suspect]
     Active Substance: OSIMERTINIB
     Indication: EGFR gene mutation
     Dosage: 40 MG (=20 ML)
     Route: 048
     Dates: start: 20210512
  45. OSIMERTINIB [Suspect]
     Active Substance: OSIMERTINIB
     Indication: Lung adenocarcinoma stage III
     Dosage: 40 MG (=20 ML)
     Route: 048
     Dates: start: 20210513
  46. OSIMERTINIB [Suspect]
     Active Substance: OSIMERTINIB
     Indication: EGFR gene mutation
     Dosage: 40 MG (=20 ML)
     Route: 048
     Dates: start: 20210513
  47. OSIMERTINIB [Suspect]
     Active Substance: OSIMERTINIB
     Indication: Lung adenocarcinoma stage III
     Dosage: 50 MG (=25 ML)
     Route: 048
     Dates: start: 20210514
  48. OSIMERTINIB [Suspect]
     Active Substance: OSIMERTINIB
     Indication: EGFR gene mutation
     Dosage: 50 MG (=25 ML)
     Route: 048
     Dates: start: 20210514
  49. OSIMERTINIB [Suspect]
     Active Substance: OSIMERTINIB
     Indication: Lung adenocarcinoma stage III
     Dosage: 50 MG (=25 ML)
     Route: 048
     Dates: start: 20210515
  50. OSIMERTINIB [Suspect]
     Active Substance: OSIMERTINIB
     Indication: EGFR gene mutation
     Dosage: 50 MG (=25 ML)
     Route: 048
     Dates: start: 20210515
  51. OSIMERTINIB [Suspect]
     Active Substance: OSIMERTINIB
     Indication: Lung adenocarcinoma stage III
     Dosage: 50 MG (=25 ML)
     Route: 048
     Dates: start: 20210516
  52. OSIMERTINIB [Suspect]
     Active Substance: OSIMERTINIB
     Indication: EGFR gene mutation
     Dosage: 50 MG (=25 ML)
     Route: 048
     Dates: start: 20210516
  53. OSIMERTINIB [Suspect]
     Active Substance: OSIMERTINIB
     Indication: Lung adenocarcinoma stage III
     Dosage: 60 MG (=30 ML)
     Route: 048
     Dates: start: 20210517
  54. OSIMERTINIB [Suspect]
     Active Substance: OSIMERTINIB
     Indication: EGFR gene mutation
     Dosage: 60 MG (=30 ML)
     Route: 048
     Dates: start: 20210517
  55. OSIMERTINIB [Suspect]
     Active Substance: OSIMERTINIB
     Indication: Lung adenocarcinoma stage III
     Dosage: 60 MG (=30 ML)
     Route: 048
     Dates: start: 20210518
  56. OSIMERTINIB [Suspect]
     Active Substance: OSIMERTINIB
     Indication: EGFR gene mutation
     Dosage: 60 MG (=30 ML)
     Route: 048
     Dates: start: 20210518
  57. OSIMERTINIB [Suspect]
     Active Substance: OSIMERTINIB
     Indication: Lung adenocarcinoma stage III
     Dosage: 60 MG (=30 ML)
     Route: 048
     Dates: start: 20210519
  58. OSIMERTINIB [Suspect]
     Active Substance: OSIMERTINIB
     Indication: EGFR gene mutation
     Dosage: 60 MG (=30 ML)
     Route: 048
     Dates: start: 20210519
  59. OSIMERTINIB [Suspect]
     Active Substance: OSIMERTINIB
     Indication: Lung adenocarcinoma stage III
     Dosage: 70 MG (=35 ML)
     Route: 048
     Dates: start: 20210520
  60. OSIMERTINIB [Suspect]
     Active Substance: OSIMERTINIB
     Indication: EGFR gene mutation
     Dosage: 70 MG (=35 ML)
     Route: 048
     Dates: start: 20210520
  61. OSIMERTINIB [Suspect]
     Active Substance: OSIMERTINIB
     Indication: Lung adenocarcinoma stage III
     Dosage: 70 MG (=35 ML)
     Route: 048
     Dates: start: 20210521
  62. OSIMERTINIB [Suspect]
     Active Substance: OSIMERTINIB
     Indication: EGFR gene mutation
     Dosage: 70 MG (=35 ML)
     Route: 048
     Dates: start: 20210521
  63. OSIMERTINIB [Suspect]
     Active Substance: OSIMERTINIB
     Indication: Lung adenocarcinoma stage III
     Dosage: 70 MG (=35 ML)
     Route: 048
     Dates: start: 20210522
  64. OSIMERTINIB [Suspect]
     Active Substance: OSIMERTINIB
     Indication: EGFR gene mutation
     Dosage: 70 MG (=35 ML)
     Route: 048
     Dates: start: 20210522
  65. OSIMERTINIB [Suspect]
     Active Substance: OSIMERTINIB
     Indication: Lung adenocarcinoma stage III
     Dosage: 80 MG (=40 ML)
     Route: 048
     Dates: start: 20210523
  66. OSIMERTINIB [Suspect]
     Active Substance: OSIMERTINIB
     Indication: EGFR gene mutation
     Dosage: 80 MG (=40 ML)
     Route: 048
     Dates: start: 20210523
  67. OSIMERTINIB [Suspect]
     Active Substance: OSIMERTINIB
     Indication: Lung adenocarcinoma stage III
     Route: 048
  68. OSIMERTINIB [Suspect]
     Active Substance: OSIMERTINIB
     Indication: EGFR gene mutation
     Route: 048
  69. OSIMERTINIB [Suspect]
     Active Substance: OSIMERTINIB
     Indication: Lung adenocarcinoma stage III
     Dosage: TITRATED DOSE FROM 5 MG TO MAXIMAL DAILY DOSE OF 40 MG
     Route: 048
  70. OSIMERTINIB [Suspect]
     Active Substance: OSIMERTINIB
     Indication: EGFR gene mutation
     Dosage: TITRATED DOSE FROM 5 MG TO MAXIMAL DAILY DOSE OF 40 MG
     Route: 048
  71. DOXYCYCLINE [Concomitant]
     Active Substance: DOXYCYCLINE\DOXYCYCLINE HYCLATE

REACTIONS (3)
  - Hypersensitivity [Recovered/Resolved]
  - Thrombocytopenia [Unknown]
  - Diverticulitis [Unknown]
